FAERS Safety Report 5890488-1 (Version None)
Quarter: 2008Q3

REPORT INFORMATION
  Report Type: 
  Country: None (occurrence: None)
  Receive Date: 20080922
  Receipt Date: 20080916
  Transmission Date: 20090109
  Serious: Yes (Hospitalization)
  Sender: FDA-Public Use
  Company Number: CH-BAYER-200826371GPV

PATIENT
  Age: 48 Year
  Sex: Female

DRUGS (4)
  1. BETAFERON [Suspect]
     Indication: MULTIPLE SCLEROSIS
     Route: 058
     Dates: start: 20080605
  2. BETAFERON [Suspect]
     Route: 058
  3. DAFALGAN [Concomitant]
     Indication: INFLUENZA LIKE ILLNESS
     Route: 048
     Dates: start: 20080605
  4. LYRICA [Concomitant]
     Indication: RESTLESS LEGS SYNDROME
     Route: 048
     Dates: start: 20080701

REACTIONS (2)
  - BACK PAIN [None]
  - SLEEP DISORDER [None]
